FAERS Safety Report 5446393-8 (Version None)
Quarter: 2007Q3

REPORT INFORMATION
  Report Type: 
  Country: None (occurrence: None)
  Receive Date: 20070907
  Receipt Date: 20070905
  Transmission Date: 20080115
  Serious: Yes (Other)
  Sender: FDA-Public Use
  Company Number: A0677168A

PATIENT
  Age: 55 Year
  Sex: Female

DRUGS (2)
  1. ALLI [Suspect]
     Indication: WEIGHT LOSS DIET
     Route: 048
     Dates: start: 20070701, end: 20070822
  2. NO CONCURRENT MEDICATION [Concomitant]

REACTIONS (7)
  - ANAPHYLACTIC SHOCK [None]
  - ANOREXIA [None]
  - DIARRHOEA [None]
  - NAUSEA [None]
  - PRURITUS [None]
  - RASH GENERALISED [None]
  - RETCHING [None]
